FAERS Safety Report 7734963-3 (Version None)
Quarter: 2011Q3

REPORT INFORMATION
  Report Type: 
  Country: None (occurrence: None)
  Receive Date: 20110907
  Receipt Date: 20110830
  Transmission Date: 20111222
  Serious: Yes (Other)
  Sender: FDA-Public Use
  Company Number: PHHY2011GB79071

PATIENT
  Age: 71 Year
  Sex: Female

DRUGS (1)
  1. LEVETIRACETAM [Suspect]
     Dosage: UNK

REACTIONS (4)
  - FATIGUE [None]
  - NAUSEA [None]
  - TREMOR [None]
  - DYSKINESIA [None]
